FAERS Safety Report 9959478 (Version 1)
Quarter: 2014Q1

REPORT INFORMATION
  Report Type: Spontaneous
  Country: US (occurrence: None)
  Receive Date: 20140228
  Receipt Date: 20140228
  Transmission Date: 20141002
  Serious: Yes (Hospitalization, Other)
  Sender: FDA-Public Use
  Company Number: None

PATIENT
  Age: 44 Year
  Sex: Female

DRUGS (5)
  1. BUPROPION XL [Suspect]
     Indication: DEPRESSION
     Dates: start: 20140124
  2. PROZAC [Concomitant]
  3. BIAXIN [Concomitant]
  4. TRAZODONE [Concomitant]
  5. FLONASE [Concomitant]

REACTIONS (2)
  - Convulsion [None]
  - Fall [None]
